FAERS Safety Report 21080766 (Version 1)
Quarter: 2022Q3

REPORT INFORMATION
  Report Type: Spontaneous
  Country: US (occurrence: US)
  Receive Date: 20220714
  Receipt Date: 20220714
  Transmission Date: 20221027
  Serious: No
  Sender: FDA-Public Use
  Company Number: US-AUROBINDO-AUR-APL-2022-002633

PATIENT
  Age: 59 Year
  Sex: Female

DRUGS (2)
  1. VALACYCLOVIR [Suspect]
     Active Substance: VALACYCLOVIR HYDROCHLORIDE
     Indication: Herpes simplex
     Dosage: 2 DOSAGE FORM, DAILY
     Route: 048
  2. VALACYCLOVIR HYDROCHLORIDE [Suspect]
     Active Substance: VALACYCLOVIR HYDROCHLORIDE
     Indication: Herpes simplex
     Dosage: 500 MILLIGRAM (CAMBER)
     Route: 048

REACTIONS (4)
  - Drug ineffective [Unknown]
  - Inappropriate schedule of product administration [Unknown]
  - Product substitution issue [Unknown]
  - Suspected product quality issue [Unknown]
